FAERS Safety Report 7442471-2 (Version None)
Quarter: 2011Q2

REPORT INFORMATION
  Report Type: 
  Country: None (occurrence: None)
  Receive Date: 20110428
  Receipt Date: 20110426
  Transmission Date: 20111010
  Serious: Yes (Other)
  Sender: FDA-Public Use
  Company Number: US-PFIZER INC-2011006069

PATIENT
  Sex: Female

DRUGS (10)
  1. CHANTIX [Suspect]
     Indication: SMOKING CESSATION THERAPY
     Dosage: UNK
     Dates: start: 20071101, end: 20080201
  2. DOCUSATE SODIUM [Concomitant]
     Indication: ASTHMA
     Dosage: UNK
     Dates: start: 19910101
  3. TRIMETHOBENZAMIDE [Concomitant]
     Indication: PAIN
     Dosage: UNK
     Dates: start: 19920101
  4. ALBUTEROL [Concomitant]
     Indication: ASTHMA
     Dosage: UNK
     Dates: start: 19910101
  5. LORATADINE [Concomitant]
     Indication: HYPERSENSITIVITY
     Dosage: UNK
     Dates: start: 19920101
  6. SIMVASTATIN [Concomitant]
     Indication: BLOOD CHOLESTEROL
     Dosage: UNK
     Dates: start: 19920101
  7. OXYCODONE [Concomitant]
     Indication: PAIN
     Dosage: UNK
     Dates: start: 19920101
  8. NABUMETONE [Concomitant]
     Dosage: UNK
     Dates: start: 19920101
  9. IPRATROPIUM [Concomitant]
     Indication: ASTHMA
     Dosage: UNK
     Dates: start: 19910101
  10. PERCOCET [Concomitant]
     Indication: BACK PAIN
     Dosage: UNK
     Dates: start: 20020101

REACTIONS (2)
  - SUICIDE ATTEMPT [None]
  - ABDOMINAL DISCOMFORT [None]
